FAERS Safety Report 4595671-3 (Version None)
Quarter: 2005Q1

REPORT INFORMATION
  Report Type: 
  Country: None (occurrence: None)
  Receive Date: 20050223
  Receipt Date: 20050223
  Transmission Date: 20050727
  Serious: Yes (Hospitalization)
  Sender: FDA-Public Use
  Company Number: None

PATIENT
  Age: 66 Year
  Sex: Male
  Weight: 68 kg

DRUGS (2)
  1. MAGNESIUM CITRIDE SOLN [Suspect]
     Indication: CONSTIPATION
  2. MAGNESIUM CITRIDE SOLN [Suspect]
     Indication: SELF-MEDICATION

REACTIONS (5)
  - ARTHRALGIA [None]
  - ASTHENIA [None]
  - DYSSTASIA [None]
  - MENTAL STATUS CHANGES [None]
  - MUSCULAR WEAKNESS [None]
